FAERS Safety Report 4976054-0 (Version None)
Quarter: 2006Q2

REPORT INFORMATION
  Report Type: 
  Country: None (occurrence: None)
  Receive Date: 20060411
  Receipt Date: 20060329
  Transmission Date: 20061013
  Serious: Yes (Hospitalization, Other)
  Sender: FDA-Public Use
  Company Number: 2006042774

PATIENT
  Sex: Male

DRUGS (1)
  1. VIAGRA [Suspect]
     Indication: ILL-DEFINED DISORDER

REACTIONS (10)
  - BACTERIAL INFECTION [None]
  - BLOOD TESTOSTERONE DECREASED [None]
  - CHRONIC FATIGUE SYNDROME [None]
  - DRUG EFFECT DECREASED [None]
  - IMMUNE SYSTEM DISORDER [None]
  - LOSS OF LIBIDO [None]
  - MEMORY IMPAIRMENT [None]
  - PENIS DISORDER [None]
  - PNEUMONIA [None]
  - SEXUAL DYSFUNCTION [None]
